FAERS Safety Report 5216316-5 (Version None)
Quarter: 2007Q1

REPORT INFORMATION
  Report Type: 
  Country: None (occurrence: None)
  Receive Date: 20070123
  Receipt Date: 20070112
  Transmission Date: 20070707
  Serious: Yes (Other)
  Sender: FDA-Public Use
  Company Number: FR-PFIZER INC-2007004152

PATIENT
  Age: 83 Year
  Sex: Female

DRUGS (3)
  1. ARTHROTEC [Suspect]
     Indication: POLYARTHRITIS
  2. ACETAMINOPHEN W/ PROPOXYPHENE HCL [Concomitant]
  3. LERCAN [Concomitant]

REACTIONS (1)
  - BLOOD PRESSURE [None]
